FAERS Safety Report 4729151-9 (Version None)
Quarter: 2005Q3

REPORT INFORMATION
  Report Type: 
  Country: None (occurrence: None)
  Receive Date: 20050729
  Receipt Date: 20040608
  Transmission Date: 20060218
  Serious: No
  Sender: FDA-Public Use
  Company Number: US-GLAXOSMITHKLINE-A0513823A

PATIENT
  Sex: Female

DRUGS (7)
  1. IMITREX [Suspect]
     Indication: MIGRAINE
     Route: 048
  2. GLUCOPHAGE [Concomitant]
  3. ACTOS [Concomitant]
  4. LANTUS [Concomitant]
  5. PRILOSEC [Concomitant]
  6. SYNTHROID [Concomitant]
  7. PROZAC [Concomitant]

REACTIONS (1)
  - THERAPEUTIC RESPONSE DECREASED [None]
